FAERS Safety Report 16853965 (Version 1)
Quarter: 2019Q3

REPORT INFORMATION
  Report Type: Spontaneous
  Country: GR (occurrence: GR)
  Receive Date: 20190926
  Receipt Date: 20190926
  Transmission Date: 20191005
  Serious: Yes (Disabling)
  Sender: FDA-Public Use
  Company Number: GR-SUN PHARMACEUTICAL INDUSTRIES LTD-2019RR-221821

PATIENT
  Age: 60 Year
  Sex: Male
  Weight: 86 kg

DRUGS (7)
  1. FENOFIBRATE. [Suspect]
     Active Substance: FENOFIBRATE
     Indication: DYSLIPIDAEMIA
     Dosage: 145 MILLIGRAM, UNK
     Route: 065
     Dates: start: 200906, end: 200910
  2. ROSUVASTATIN. [Suspect]
     Active Substance: ROSUVASTATIN
     Indication: DYSLIPIDAEMIA
     Dosage: 5 MILLIGRAM, UNK
     Route: 065
     Dates: start: 201802, end: 201803
  3. EZETIMIBE. [Suspect]
     Active Substance: EZETIMIBE
     Dosage: 10 MILLIGRAM, UNK
     Route: 065
     Dates: start: 201903, end: 201905
  4. ATORVASTATIN [Suspect]
     Active Substance: ATORVASTATIN
     Indication: DYSLIPIDAEMIA
     Dosage: 20 MILLIGRAM, UNK
     Route: 065
     Dates: start: 200403, end: 200406
  5. EZETIMIBE. [Suspect]
     Active Substance: EZETIMIBE
     Indication: DYSLIPIDAEMIA
     Dosage: 10 MILLIGRAM, UNK
     Route: 065
     Dates: start: 200910, end: 200912
  6. ATORVASTATIN [Suspect]
     Active Substance: ATORVASTATIN
     Dosage: 10 MILLIGRAM, UNK
     Route: 065
     Dates: start: 201903, end: 201905
  7. SIMVASTATIN. [Suspect]
     Active Substance: SIMVASTATIN
     Indication: DYSLIPIDAEMIA
     Dosage: 10 MILLIGRAM, UNK
     Route: 065
     Dates: start: 200910, end: 200912

REACTIONS (4)
  - Muscular weakness [Unknown]
  - Muscle spasms [Unknown]
  - Myopathy [Unknown]
  - Myalgia [Unknown]

NARRATIVE: CASE EVENT DATE: 2004
